FAERS Safety Report 18589854 (Version 1)
Quarter: 2020Q4

REPORT INFORMATION
  Report Type: Spontaneous
  Country: US (occurrence: US)
  Receive Date: 20201207
  Receipt Date: 20201207
  Transmission Date: 20210114
  Serious: No
  Sender: FDA-Public Use
  Company Number: None

PATIENT
  Sex: Female

DRUGS (1)
  1. AMBRISENTAN [Suspect]
     Active Substance: AMBRISENTAN

REACTIONS (7)
  - Hypertension [None]
  - Vomiting [None]
  - Dizziness [None]
  - Fatigue [None]
  - Peripheral swelling [None]
  - Depression [None]
  - Anxiety [None]
